FAERS Safety Report 9119948 (Version 1)
Quarter: 2013Q1

REPORT INFORMATION
  Report Type: Spontaneous
  Country: BR (occurrence: BR)
  Receive Date: 20130226
  Receipt Date: 20130226
  Transmission Date: 20140127
  Serious: Yes (Other)
  Sender: FDA-Public Use
  Company Number: PHHY2013BR017931

PATIENT
  Sex: Female
  Weight: 64 kg

DRUGS (10)
  1. DIOVAN [Suspect]
     Indication: HYPERTENSION
     Dosage: 160 MG, DAILY
     Route: 048
  2. AMARYL [Suspect]
     Indication: DIABETES MELLITUS
     Dosage: 4 MG, DAILY
     Route: 048
  3. DAFLON 500 [Concomitant]
     Indication: VARICOSE VEIN
     Dosage: 2 DF, DAILY
     Route: 048
  4. CREON [Concomitant]
     Indication: PANCREATIC ENZYMES DECREASED
     Dosage: 10 MG, DAILY
     Route: 048
  5. PERIDIAL [Concomitant]
     Indication: GASTROINTESTINAL DISORDER
     Dosage: 3 DF, DAILY
     Route: 048
  6. LABEL [Concomitant]
     Indication: GASTROOESOPHAGEAL REFLUX DISEASE
     Dosage: 2 DF (150), DAILY
     Route: 048
  7. LIPTOR [Concomitant]
     Indication: ANTICOAGULANT THERAPY
     Dosage: 10 MG, DAILY
     Route: 048
  8. EUTHYROX [Concomitant]
     Indication: THYROID DISORDER
     Dosage: 0.5 DF, DAILY
     Route: 048
  9. OSCAL D                            T [Concomitant]
     Indication: OSTEOARTHRITIS
     Dosage: 2 DF (500 MG) DAILY
     Route: 048
  10. GLUCOSAMINE + CHONDROITIN [Concomitant]
     Indication: INADEQUATE LUBRICATION
     Dosage: 1 DF (1500 GLU/1200 CH) A DAY
     Route: 048

REACTIONS (2)
  - Cataract [Not Recovered/Not Resolved]
  - Macular degeneration [Recovering/Resolving]
